FAERS Safety Report 19744949 (Version 1)
Quarter: 2021Q3

REPORT INFORMATION
  Report Type: Spontaneous
  Country: US (occurrence: US)
  Receive Date: 20210824
  Receipt Date: 20210824
  Transmission Date: 20211014
  Serious: No
  Sender: FDA-Public Use
  Company Number: None

PATIENT
  Age: 60 Year
  Sex: Male

DRUGS (1)
  1. MECLIZINE 25MG TABLET?SUB MEDI [Suspect]
     Active Substance: MECLIZINE HYDROCHLORIDE
     Indication: DIZZINESS
     Dosage: ?          QUANTITY:1 TABLET(S);?
     Route: 048
     Dates: start: 20210823

REACTIONS (3)
  - Product expiration date issue [None]
  - Product lot number issue [None]
  - Product name confusion [None]

NARRATIVE: CASE EVENT DATE: 20210823
